FAERS Safety Report 10194317 (Version 1)
Quarter: 2014Q2

REPORT INFORMATION
  Report Type: Spontaneous
  Country: DE (occurrence: DE)
  Receive Date: 20140526
  Receipt Date: 20140526
  Transmission Date: 20141212
  Serious: Yes (Congenital Anomaly)
  Sender: FDA-Public Use
  Company Number: DE-009507513-1405DEU008906

PATIENT
  Sex: Male

DRUGS (3)
  1. MIRTAZAPINE [Suspect]
     Indication: DEPRESSION
     Dosage: 1 MG, 1/1DAY
     Route: 064
  2. CITALOPRAM [Suspect]
     Indication: DEPRESSION
     Dosage: 20 MG,1/1DAY
     Route: 064
     Dates: start: 20121212, end: 20130421
  3. FOLIC ACID [Concomitant]
     Indication: PROPHYLAXIS OF NEURAL TUBE DEFECT
     Dosage: UNK
     Route: 064
     Dates: end: 20130320

REACTIONS (2)
  - Asplenia [Not Recovered/Not Resolved]
  - Limb reduction defect [Not Recovered/Not Resolved]
